FAERS Safety Report 10691660 (Version 2)
Quarter: 2015Q1

REPORT INFORMATION
  Report Type: Spontaneous
  Country: JP (occurrence: JP)
  Receive Date: 20150105
  Receipt Date: 20150105
  Transmission Date: 20150720
  Serious: Yes (Hospitalization, Other)
  Sender: FDA-Public Use
  Company Number: JP-ASTELLAS-2013JP012843

PATIENT
  Age: 79 Year
  Sex: Female

DRUGS (24)
  1. FUNGUARD [Suspect]
     Active Substance: MICAFUNGIN SODIUM
     Dosage: 5 ?G/0.1ML, UNKNOWN FREQ.
     Route: 047
     Dates: start: 201304, end: 201304
  2. AMPHOTERICIN B. [Concomitant]
     Active Substance: AMPHOTERICIN B
     Dosage: UNK, UNKNOWN FREQ.
     Route: 041
     Dates: start: 201304, end: 201304
  3. CEFTAZIDIME. [Concomitant]
     Active Substance: CEFTAZIDIME
     Indication: ENDOPHTHALMITIS
     Dosage: 40 ?G/ML, ONCE DAILY
     Route: 047
     Dates: start: 201302, end: 201302
  4. MINOCYCLINE [Concomitant]
     Active Substance: MINOCYCLINE\MINOCYCLINE HYDROCHLORIDE
     Indication: PRODUCT USED FOR UNKNOWN INDICATION
     Dosage: UNK UNK, UNKNOWN FREQ.
     Route: 048
     Dates: start: 2013, end: 201303
  5. FUNGUARD [Suspect]
     Active Substance: MICAFUNGIN SODIUM
     Dosage: UNK UNK, UNKNOWN FREQ.
     Route: 041
     Dates: start: 201304, end: 201304
  6. FUNGUARD [Suspect]
     Active Substance: MICAFUNGIN SODIUM
     Dosage: 5 ?G/0.1ML, UNKNOWN FREQ.
     Route: 047
     Dates: start: 201304, end: 201304
  7. AMPHOTERICIN B. [Concomitant]
     Active Substance: AMPHOTERICIN B
     Indication: EYE IRRIGATION
     Route: 041
     Dates: start: 201303, end: 201303
  8. VANCOMYCIN HYDROCHLORIDE. [Concomitant]
     Active Substance: VANCOMYCIN HYDROCHLORIDE
     Indication: HYPOPYON
     Route: 041
     Dates: start: 201302, end: 2013
  9. PREDNISOLONE. [Suspect]
     Active Substance: PREDNISOLONE
     Indication: NON-INFECTIOUS ENDOPHTHALMITIS
     Route: 048
     Dates: start: 201302, end: 201302
  10. AMPHOTERICIN B. [Concomitant]
     Active Substance: AMPHOTERICIN B
     Indication: MYCOTIC ENDOPHTHALMITIS
     Dosage: 5 ?G/ML, UNKNOWN FREQ.
     Route: 047
     Dates: start: 201303, end: 201303
  11. CEFTAZIDIME. [Concomitant]
     Active Substance: CEFTAZIDIME
     Indication: HYPOPYON
     Route: 041
     Dates: start: 201302, end: 2013
  12. FUNGUARD [Suspect]
     Active Substance: MICAFUNGIN SODIUM
     Route: 041
     Dates: start: 201303, end: 201303
  13. OFLOXACIN. [Concomitant]
     Active Substance: OFLOXACIN
     Indication: PRODUCT USED FOR UNKNOWN INDICATION
     Dosage: UNK UNK, UNKNOWN FREQ.
     Route: 047
  14. BETAMETHASONE SODIUM PHOSPHATE [Concomitant]
     Active Substance: BETAMETHASONE SODIUM PHOSPHATE
     Indication: PRODUCT USED FOR UNKNOWN INDICATION
     Dosage: UNK UNK, UNKNOWN FREQ.
     Route: 047
     Dates: end: 201304
  15. VANCOMYCIN HYDROCHLORIDE. [Concomitant]
     Active Substance: VANCOMYCIN HYDROCHLORIDE
     Indication: ENDOPHTHALMITIS
     Dosage: 20 ?G/ML, ONCE DAILY
     Route: 047
     Dates: start: 201302, end: 201302
  16. LEVOFLOXACIN HEMIHYDRATE [Concomitant]
     Active Substance: LEVOFLOXACIN
     Indication: PRODUCT USED FOR UNKNOWN INDICATION
     Dosage: UNK UNK, UNKNOWN FREQ.
     Route: 048
     Dates: start: 2013, end: 201303
  17. FUNGUARD [Suspect]
     Active Substance: MICAFUNGIN SODIUM
     Indication: MYCOTIC ENDOPHTHALMITIS
     Route: 041
     Dates: start: 201302, end: 2013
  18. FUNGUARD [Suspect]
     Active Substance: MICAFUNGIN SODIUM
     Dosage: UNK UNK, UNKNOWN FREQ.
     Route: 047
     Dates: start: 201303, end: 201303
  19. VORICONAZOLE. [Suspect]
     Active Substance: VORICONAZOLE
     Indication: MYCOTIC ENDOPHTHALMITIS
     Route: 048
     Dates: start: 201302, end: 201302
  20. AMPHOTERICIN B. [Concomitant]
     Active Substance: AMPHOTERICIN B
     Dosage: 5 ?G/0.1ML, UNKNOWN FREQ.
     Route: 047
     Dates: start: 201304, end: 201304
  21. VANCOMYCIN HYDROCHLORIDE. [Concomitant]
     Active Substance: VANCOMYCIN HYDROCHLORIDE
     Indication: EYE IRRIGATION
     Dosage: 20 ?G/ML, UNKNOWN FREQ., ONCE DAILY
     Route: 047
     Dates: start: 201303, end: 201303
  22. CEFTAZIDIME. [Concomitant]
     Active Substance: CEFTAZIDIME
     Indication: EYE IRRIGATION
     Dosage: 40 ?G/ML, ONCE DAILY
     Route: 047
     Dates: start: 201303, end: 201303
  23. VORICONAZOLE. [Suspect]
     Active Substance: VORICONAZOLE
     Route: 048
     Dates: start: 201302, end: 201304
  24. AMPHOTERICIN B. [Concomitant]
     Active Substance: AMPHOTERICIN B
     Dosage: 5 ?G/0.1ML, UNKNOWN FREQ.
     Route: 047
     Dates: start: 201304, end: 201304

REACTIONS (6)
  - Macular oedema [Recovered/Resolved]
  - Off label use [Unknown]
  - Generalised oedema [Recovered/Resolved]
  - Pancytopenia [Recovered/Resolved]
  - Hypokalaemia [Recovered/Resolved]
  - Intentional product use issue [Unknown]

NARRATIVE: CASE EVENT DATE: 201302
